FAERS Safety Report 4484938-5 (Version None)
Quarter: 2004Q3

REPORT INFORMATION
  Report Type: 
  Country: None (occurrence: None)
  Receive Date: 20040921
  Receipt Date: 20030814
  Transmission Date: 20050211
  Serious: Yes (Hospitalization)
  Sender: FDA-Public Use
  Company Number: 163-20785-03080553

PATIENT
  Age: 49 Year
  Sex: Female
  Weight: 82.5547 kg

DRUGS (6)
  1. THALOMID [Suspect]
     Indication: BREAST CANCER
     Dosage: 100 MG, ORAL
     Route: 048
     Dates: start: 20030807
  2. CAPECITABINE (CAPECITABINE) [Suspect]
     Indication: BREAST CANCER
     Dosage: 4000 MG, ORAL
     Route: 048
     Dates: start: 20030807
  3. MS CONTIN [Concomitant]
  4. MORPHINE SULFATE [Concomitant]
  5. ZOMETA [Concomitant]
  6. ZOLOFT [Concomitant]

REACTIONS (4)
  - CHEST PAIN [None]
  - DYSPNOEA [None]
  - HEPATIC LESION [None]
  - SPINAL DISORDER [None]
